FAERS Safety Report 14470966 (Version 1)
Quarter: 2018Q1

REPORT INFORMATION
  Report Type: Spontaneous
  Country: US (occurrence: US)
  Receive Date: 20180131
  Receipt Date: 20180131
  Transmission Date: 20180509
  Serious: Yes (Hospitalization, Other)
  Sender: FDA-Public Use
  Company Number: US-ASTRAZENECA-2017SE29519

PATIENT
  Age: 880 Month
  Sex: Female
  Weight: 62.1 kg

DRUGS (7)
  1. METOPROLOL SUCCINATE. [Suspect]
     Active Substance: METOPROLOL SUCCINATE
     Route: 048
     Dates: start: 201702
  2. SYMBICORT [Suspect]
     Active Substance: BUDESONIDE\FORMOTEROL FUMARATE DIHYDRATE
     Indication: CHRONIC OBSTRUCTIVE PULMONARY DISEASE
     Dosage: 160/4.5MCG INHALER, 2 PUFFS TWICE DAILY
     Route: 055
     Dates: start: 2014
  3. TUDORZA PRESSAIR [Suspect]
     Active Substance: ACLIDINIUM BROMIDE
     Indication: CHRONIC OBSTRUCTIVE PULMONARY DISEASE
     Dosage: 400MCG INHALER, 1 PUFF TWICE DAILY
     Route: 055
     Dates: start: 2015
  4. AUGMENTIN [Concomitant]
     Active Substance: AMOXICILLIN\CLAVULANATE POTASSIUM
     Indication: PYREXIA
     Dosage: 500/125MG; TWO TIMES A DAY
     Route: 048
     Dates: start: 20170309
  5. LOW DOSE ASPIRIN [Concomitant]
     Active Substance: ASPIRIN
     Route: 048
     Dates: start: 201702
  6. FAMOTIDINE. [Concomitant]
     Active Substance: FAMOTIDINE
     Indication: GASTROOESOPHAGEAL REFLUX DISEASE
     Route: 048
     Dates: start: 201702
  7. SIMVASTATIN. [Concomitant]
     Active Substance: SIMVASTATIN
     Route: 048
     Dates: start: 201702

REACTIONS (12)
  - Troponin increased [Unknown]
  - Extra dose administered [Unknown]
  - Drug ineffective [Unknown]
  - Myocardial infarction [Unknown]
  - Back disorder [Unknown]
  - Device issue [Unknown]
  - Bronchitis [Unknown]
  - Cerebrovascular accident [Unknown]
  - Drug dose omission [Unknown]
  - Non-small cell lung cancer [Unknown]
  - Visual impairment [Unknown]
  - Pneumonia [Unknown]

NARRATIVE: CASE EVENT DATE: 201701
